FAERS Safety Report 24959159 (Version 1)
Quarter: 2025Q1

REPORT INFORMATION
  Report Type: Spontaneous
  Country: US (occurrence: US)
  Receive Date: 20250212
  Receipt Date: 20250212
  Transmission Date: 20250408
  Serious: Yes (Death, Life-Threatening, Hospitalization, Other)
  Sender: ACCORD
  Company Number: US-Accord-467999

PATIENT
  Age: 35 Year
  Sex: Female
  Weight: 85.3 kg

DRUGS (37)
  1. IRINOTECAN [Suspect]
     Active Substance: IRINOTECAN
     Indication: Soft tissue sarcoma
     Route: 042
     Dates: start: 20230920, end: 20230920
  2. TEMOZOLOMIDE [Suspect]
     Active Substance: TEMOZOLOMIDE
     Indication: Soft tissue sarcoma
     Route: 048
     Dates: start: 20230922, end: 20230922
  3. ALBUTEROL [Concomitant]
     Active Substance: ALBUTEROL
     Dates: start: 20160302
  4. BUDESONIDE\FORMOTEROL FUMARATE [Concomitant]
     Active Substance: BUDESONIDE\FORMOTEROL FUMARATE
     Dates: start: 20230502
  5. ESCITALOPRAM OXALATE [Concomitant]
     Active Substance: ESCITALOPRAM OXALATE
     Dates: start: 20230606
  6. DEXAMETHASONE [Concomitant]
     Active Substance: DEXAMETHASONE
     Dates: start: 20230428
  7. LEVOFLOXACIN [Concomitant]
     Active Substance: LEVOFLOXACIN
     Dates: start: 20230824
  8. MORPHINE [Concomitant]
     Active Substance: MORPHINE
     Dates: start: 20230824
  9. OLANZAPINE [Concomitant]
     Active Substance: OLANZAPINE
     Dates: start: 20230428
  10. PEGFILGRASTIM [Concomitant]
     Active Substance: PEGFILGRASTIM
     Dates: start: 20230505
  11. ZOLPIDEM [Concomitant]
     Active Substance: ZOLPIDEM TARTRATE
     Dates: start: 20230526
  12. CEFPODOXIME PROXETIL [Concomitant]
     Active Substance: CEFPODOXIME PROXETIL
     Dates: start: 20230924
  13. URSODIOL [Concomitant]
     Active Substance: URSODIOL
     Dates: start: 20230920
  14. LORATADINE [Concomitant]
     Active Substance: LORATADINE
     Dates: start: 20230918
  15. ALBUTEROL [Concomitant]
     Active Substance: ALBUTEROL
     Dates: start: 202311
  16. CEFEPIME [Concomitant]
     Active Substance: CEFEPIME HYDROCHLORIDE
     Dates: start: 202311
  17. HYDROMORPHONE HYDROCHLORIDE [Concomitant]
     Active Substance: HYDROMORPHONE HYDROCHLORIDE
     Dates: start: 202311
  18. ALBUTEROL\IPRATROPIUM BROMIDE [Concomitant]
     Active Substance: ALBUTEROL\IPRATROPIUM BROMIDE
     Dates: start: 202311
  19. PANTOPRAZOLE [Concomitant]
     Active Substance: PANTOPRAZOLE
     Dates: start: 20231111
  20. PROCHLORPERAZINE [Concomitant]
     Active Substance: PROCHLORPERAZINE
     Dates: start: 20230829
  21. FILGRASTIM [Concomitant]
     Active Substance: FILGRASTIM
     Dates: start: 202311
  22. MOMETASONE [Concomitant]
     Active Substance: MOMETASONE
     Dates: start: 202311
  23. ONDANSETRON [Concomitant]
     Active Substance: ONDANSETRON
     Dates: start: 20230901
  24. POTASSIUM CHLORIDE [Concomitant]
     Active Substance: POTASSIUM CHLORIDE
     Dates: start: 20230922
  25. Alumag [Concomitant]
     Dates: start: 202311
  26. IRINOTECAN [Suspect]
     Active Substance: IRINOTECAN
     Indication: Soft tissue sarcoma
     Route: 042
     Dates: start: 20230921, end: 20230921
  27. IRINOTECAN [Suspect]
     Active Substance: IRINOTECAN
     Indication: Soft tissue sarcoma
     Route: 042
     Dates: start: 20230924, end: 20230924
  28. IRINOTECAN [Suspect]
     Active Substance: IRINOTECAN
     Indication: Soft tissue sarcoma
     Route: 042
     Dates: start: 20231024, end: 20231024
  29. IRINOTECAN [Suspect]
     Active Substance: IRINOTECAN
     Indication: Soft tissue sarcoma
     Route: 042
     Dates: start: 20231024, end: 20231024
  30. IRINOTECAN [Suspect]
     Active Substance: IRINOTECAN
     Indication: Soft tissue sarcoma
     Route: 042
     Dates: start: 20231025, end: 20231025
  31. IRINOTECAN [Suspect]
     Active Substance: IRINOTECAN
     Indication: Soft tissue sarcoma
     Route: 042
     Dates: start: 20231027, end: 20231027
  32. IRINOTECAN [Suspect]
     Active Substance: IRINOTECAN
     Indication: Soft tissue sarcoma
     Route: 042
     Dates: start: 20231028, end: 20231028
  33. TEMOZOLOMIDE [Suspect]
     Active Substance: TEMOZOLOMIDE
     Indication: Soft tissue sarcoma
     Route: 048
     Dates: start: 20230924, end: 20230924
  34. TEMOZOLOMIDE [Suspect]
     Active Substance: TEMOZOLOMIDE
     Indication: Soft tissue sarcoma
     Route: 048
     Dates: start: 20231024, end: 20231024
  35. TEMOZOLOMIDE [Suspect]
     Active Substance: TEMOZOLOMIDE
     Indication: Soft tissue sarcoma
     Route: 048
     Dates: start: 20231025, end: 20231025
  36. TEMOZOLOMIDE [Suspect]
     Active Substance: TEMOZOLOMIDE
     Indication: Soft tissue sarcoma
     Route: 048
     Dates: start: 20231027, end: 20231027
  37. TEMOZOLOMIDE [Suspect]
     Active Substance: TEMOZOLOMIDE
     Indication: Soft tissue sarcoma
     Route: 048
     Dates: start: 20231028, end: 20231028

REACTIONS (4)
  - Pneumonia [Fatal]
  - Thrombocytopenia [Not Recovered/Not Resolved]
  - Neutropenia [Not Recovered/Not Resolved]
  - Anaemia [Not Recovered/Not Resolved]

NARRATIVE: CASE EVENT DATE: 20231110
